FAERS Safety Report 10470933 (Version 1)
Quarter: 2014Q3

REPORT INFORMATION
  Report Type: Spontaneous
  Country: JP (occurrence: JP)
  Receive Date: 20140923
  Receipt Date: 20140923
  Transmission Date: 20150326
  Serious: Yes (Other)
  Sender: FDA-Public Use
  Company Number: PHHY2014JP122225

PATIENT
  Age: 69 Year
  Sex: Female

DRUGS (2)
  1. ZOLEDRONATE [Suspect]
     Active Substance: ZOLEDRONIC ACID
     Indication: GASTRIC CANCER
     Dosage: 1 MG, UNK
     Route: 042
  2. ZOLEDRONATE [Suspect]
     Active Substance: ZOLEDRONIC ACID
     Indication: MALIGNANT ASCITES
     Dosage: 1 MG, UNK
     Route: 033

REACTIONS (5)
  - Malignant ascites [Unknown]
  - Incorrect route of drug administration [Unknown]
  - Rectal obstruction [Unknown]
  - Malignant neoplasm progression [Unknown]
  - Gastric cancer [Unknown]
